FAERS Safety Report 12605953 (Version 2)
Quarter: 2016Q4

REPORT INFORMATION
  Report Type: Spontaneous
  Country: JP (occurrence: JP)
  Receive Date: 20160729
  Receipt Date: 20161025
  Transmission Date: 20170207
  Serious: Yes (Other)
  Sender: FDA-Public Use
  Company Number: JP-BRISTOL-MYERS SQUIBB COMPANY-BMS-2016-061731

PATIENT
  Sex: Male

DRUGS (1)
  1. ABILIFY [Suspect]
     Active Substance: ARIPIPRAZOLE
     Indication: AUTONOMIC NERVOUS SYSTEM IMBALANCE
     Dosage: 3 MG, UNK
     Route: 065

REACTIONS (3)
  - Product use issue [Unknown]
  - Parkinson^s disease [Unknown]
  - Dysphagia [Unknown]
